FAERS Safety Report 15902788 (Version 3)
Quarter: 2019Q1

REPORT INFORMATION
  Report Type: Spontaneous
  Country: US (occurrence: US)
  Receive Date: 20190202
  Receipt Date: 20190322
  Transmission Date: 20190417
  Serious: No
  Sender: FDA-Public Use
  Company Number: US-SHIRE-US201903541

PATIENT
  Sex: Female
  Weight: 58.01 kg

DRUGS (1)
  1. GATTEX [Suspect]
     Active Substance: TEDUGLUTIDE\WATER
     Indication: SHORT-BOWEL SYNDROME
     Dosage: 0.29 MILLILITER, 1X/DAY:QD
     Route: 050
     Dates: start: 20181025

REACTIONS (2)
  - Seroma [Unknown]
  - Abdominal mass [Unknown]
